FAERS Safety Report 9574947 (Version 1)
Quarter: 2013Q4

REPORT INFORMATION
  Report Type: Spontaneous
  Country: DE (occurrence: DE)
  Receive Date: 20131001
  Receipt Date: 20131001
  Transmission Date: 20140711
  Serious: Yes (Hospitalization, Other)
  Sender: FDA-Public Use
  Company Number: DE-WATSON-2013-17431

PATIENT
  Age: 20 Year
  Sex: Female
  Weight: 74 kg

DRUGS (4)
  1. FLUOXETINE (UNKNOWN) [Suspect]
     Indication: DEPRESSION
     Dosage: 10-20 MG; UNK
     Route: 065
     Dates: start: 20130801, end: 20130817
  2. MOCLOBEMIDE [Suspect]
     Indication: DEPRESSION
     Dosage: 150 MG; UNK
     Route: 065
     Dates: start: 20130819, end: 20130820
  3. DOMINAL                            /00018902/ [Concomitant]
     Indication: NIGHTMARE
     Dosage: 80 MG; UNK
     Dates: start: 20130801, end: 20130819
  4. TAVOR                              /00273201/ [Concomitant]
     Indication: AGITATION
     Dosage: UNK, UNK

REACTIONS (2)
  - Loss of consciousness [Recovering/Resolving]
  - Euphoric mood [Recovering/Resolving]
